FAERS Safety Report 13299850 (Version 17)
Quarter: 2018Q1

REPORT INFORMATION
  Report Type: Spontaneous
  Country: US (occurrence: US)
  Receive Date: 20170306
  Receipt Date: 20180305
  Transmission Date: 20180508
  Serious: Yes (Hospitalization, Other)
  Sender: FDA-Public Use
  Company Number: US-ACTELION-A-US2017-150616

PATIENT
  Age: 67 Year
  Sex: Female
  Weight: 88.44 kg

DRUGS (6)
  1. UPTRAVI [Suspect]
     Active Substance: SELEXIPAG
     Indication: PULMONARY HYPERTENSION
     Dosage: UNK
     Route: 048
     Dates: end: 20180223
  2. UPTRAVI [Suspect]
     Active Substance: SELEXIPAG
     Dosage: 1000 MCG, BID
     Route: 048
  3. UPTRAVI [Suspect]
     Active Substance: SELEXIPAG
     Dosage: 600 MCG, BID
     Route: 048
  4. ADEMPAS [Concomitant]
     Active Substance: RIOCIGUAT
  5. WARFARIN [Concomitant]
     Active Substance: WARFARIN
  6. UPTRAVI [Suspect]
     Active Substance: SELEXIPAG
     Dosage: 800 MCG, BID
     Route: 048
     Dates: end: 20180223

REACTIONS (20)
  - Headache [Unknown]
  - Pain [Unknown]
  - Blood iron decreased [Unknown]
  - Hypotension [Unknown]
  - Therapy non-responder [Unknown]
  - Haemorrhage [Unknown]
  - Malaise [Unknown]
  - Transfusion [Unknown]
  - Blood count abnormal [Unknown]
  - Arthralgia [Unknown]
  - Dyspnoea [Unknown]
  - Anaemia [Unknown]
  - Haemoglobin decreased [Unknown]
  - Myalgia [Unknown]
  - Haematocrit decreased [Unknown]
  - Nausea [Unknown]
  - Fatigue [Unknown]
  - Cold sweat [Unknown]
  - Chest pain [Unknown]
  - Localised oedema [Unknown]

NARRATIVE: CASE EVENT DATE: 20170225
